FAERS Safety Report 9784776 (Version 1)
Quarter: 2013Q4

REPORT INFORMATION
  Report Type: Report from Study
  Country: US (occurrence: US)
  Receive Date: 20131227
  Receipt Date: 20131227
  Transmission Date: 20140711
  Serious: Yes (Other)
  Sender: FDA-Public Use
  Company Number: US-ROCHE-1323946

PATIENT
  Age: 65 Year
  Sex: Male
  Weight: 122.58 kg

DRUGS (2)
  1. RITUXAN [Suspect]
     Indication: VASCULITIS
     Dosage: Q2WKS X 2 Q 6
     Route: 042
     Dates: start: 20130815
  2. BACTRIM [Suspect]
     Indication: PNEUMONIA
     Dosage: 1 TAB QOD
     Route: 048
     Dates: start: 20120701

REACTIONS (5)
  - Oedema peripheral [Not Recovered/Not Resolved]
  - Pain [Not Recovered/Not Resolved]
  - Pruritus [Not Recovered/Not Resolved]
  - Nasopharyngitis [Not Recovered/Not Resolved]
  - B-lymphocyte count decreased [Not Recovered/Not Resolved]
